FAERS Safety Report 24136511 (Version 1)
Quarter: 2024Q3

REPORT INFORMATION
  Report Type: Spontaneous
  Country: US (occurrence: US)
  Receive Date: 20240725
  Receipt Date: 20240725
  Transmission Date: 20241016
  Serious: No
  Sender: ABBVIE
  Company Number: US-ABBVIE-5851343

PATIENT
  Age: 67 Year
  Sex: Female
  Weight: 105 kg

DRUGS (1)
  1. MAVYRET [Suspect]
     Active Substance: GLECAPREVIR\PIBRENTASVIR
     Indication: Chronic hepatitis C
     Dosage: STRENGTH: 100MG/40MG?DOSE OR AMOUNT : 3 UNK
     Route: 048
     Dates: start: 20240516

REACTIONS (2)
  - Pain [Unknown]
  - Fatigue [Unknown]

NARRATIVE: CASE EVENT DATE: 20240722
